FAERS Safety Report 22531472 (Version 1)
Quarter: 2023Q2

REPORT INFORMATION
  Report Type: Report from Study
  Country: US (occurrence: US)
  Receive Date: 20230607
  Receipt Date: 20230607
  Transmission Date: 20230721
  Serious: Yes (Hospitalization)
  Sender: FDA-Public Use
  Company Number: US-MYLANLABS-2023M1058777

PATIENT
  Sex: Male
  Weight: 84.8 kg

DRUGS (4)
  1. CLOZAPINE [Suspect]
     Active Substance: CLOZAPINE
     Indication: Product used for unknown indication
     Dosage: 25 MILLIGRAM, TID (3 OF 25 MG PER DAY)
     Route: 048
     Dates: start: 20230531
  2. DEPAKOTE [Concomitant]
     Active Substance: DIVALPROEX SODIUM
     Dosage: 20 MILLILITER, BID (250MG/5ML, 20ML FOR 2 TIMES A DAY)
     Route: 065
  3. LOXAPINE [Concomitant]
     Active Substance: LOXAPINE
     Dosage: 100 MILLIGRAM, BID (100 MG TWICE A DAY)
     Route: 065
  4. GLYCOPYRROLATE [Concomitant]
     Active Substance: GLYCOPYRROLATE
     Dosage: 1 MILLIGRAM, BID (1 MG  TWICE A DAY)
     Route: 065

REACTIONS (1)
  - Hospitalisation [Unknown]
